FAERS Safety Report 17250702 (Version 1)
Quarter: 2019Q4

REPORT INFORMATION
  Report Type: Spontaneous
  Country: US (occurrence: US)
  Receive Date: 20191213
  Receipt Date: 20191213
  Transmission Date: 20200122
  Serious: Yes (Hospitalization)
  Sender: FDA-Public Use
  Company Number: None

PATIENT
  Age: 67 Year
  Sex: Male
  Weight: 95.25 kg

DRUGS (1)
  1. ACETAZOLAMIDE (ACETAZOLAMIDE 250MG TAB) [Suspect]
     Active Substance: ACETAZOLAMIDE
     Indication: CHRONIC OBSTRUCTIVE PULMONARY DISEASE
     Route: 048
     Dates: start: 20190725, end: 20190803

REACTIONS (1)
  - Hypotension [None]

NARRATIVE: CASE EVENT DATE: 20190725
